FAERS Safety Report 25249864 (Version 1)
Quarter: 2025Q2

REPORT INFORMATION
  Report Type: Spontaneous
  Country: US (occurrence: US)
  Receive Date: 20250429
  Receipt Date: 20250429
  Transmission Date: 20250717
  Serious: No
  Sender: ANI
  Company Number: US-ANIPHARMA-022517

PATIENT
  Age: 75 Year
  Sex: Female
  Weight: 102.1 kg

DRUGS (2)
  1. LORAZEPAM [Suspect]
     Active Substance: LORAZEPAM
     Indication: Product used for unknown indication
     Route: 048
     Dates: start: 20250403
  2. VITAMINS [Concomitant]
     Active Substance: VITAMINS
     Indication: Product used for unknown indication

REACTIONS (2)
  - Muscle spasms [Recovering/Resolving]
  - Product substitution issue [Unknown]

NARRATIVE: CASE EVENT DATE: 20250403
